FAERS Safety Report 4426688-7 (Version None)
Quarter: 2004Q3

REPORT INFORMATION
  Report Type: 
  Country: None (occurrence: None)
  Receive Date: 20040816
  Receipt Date: 20040714
  Transmission Date: 20050211
  Serious: Yes (Hospitalization, Other)
  Sender: FDA-Public Use
  Company Number: BE-MERCK-0407BEL00036

PATIENT
  Age: 77 Year
  Sex: Female
  Weight: 67 kg

DRUGS (6)
  1. FOSAMAX [Concomitant]
     Indication: OSTEOPOROSIS
     Route: 048
     Dates: start: 20020114
  2. VIOXX [Suspect]
     Indication: LOCALISED OSTEOARTHRITIS
     Route: 048
     Dates: start: 20030511, end: 20040702
  3. VIOXX [Suspect]
     Indication: BACK PAIN
     Route: 048
     Dates: start: 20030511, end: 20040702
  4. TAMOXIFEN CITRATE [Concomitant]
     Indication: BREAST CANCER
     Route: 048
     Dates: start: 20040607
  5. TAMOXIFEN CITRATE [Concomitant]
     Indication: METASTASES TO BONE
     Route: 048
     Dates: start: 20040607
  6. ZOLEDRONIC ACID [Concomitant]
     Route: 041
     Dates: start: 20040607

REACTIONS (2)
  - GASTRIC ULCER [None]
  - HYSTERECTOMY [None]
